FAERS Safety Report 25139276 (Version 1)
Quarter: 2025Q1

REPORT INFORMATION
  Report Type: Spontaneous
  Country: MY (occurrence: MY)
  Receive Date: 20250331
  Receipt Date: 20250331
  Transmission Date: 20250408
  Serious: Yes (Life-Threatening)
  Sender: ACCORD
  Company Number: MY-Accord-475790

PATIENT
  Age: 72 Year
  Sex: Female
  Weight: 40 kg

DRUGS (2)
  1. CARBOPLATIN [Suspect]
     Active Substance: CARBOPLATIN
     Indication: Chemotherapy
     Route: 042
     Dates: start: 20250225, end: 20250225
  2. PACLITAXEL [Concomitant]
     Active Substance: PACLITAXEL
     Indication: Chemotherapy
     Route: 042
     Dates: start: 20250225, end: 20250225

REACTIONS (9)
  - Neutropenic sepsis [Unknown]
  - Pyrexia [Unknown]
  - Chills [Unknown]
  - Productive cough [Unknown]
  - Pain [Unknown]
  - Lethargy [Unknown]
  - Hypotension [Unknown]
  - Heart rate increased [Unknown]
  - Neutrophil count decreased [Unknown]

NARRATIVE: CASE EVENT DATE: 20250301
